FAERS Safety Report 23789410 (Version 3)
Quarter: 2024Q4

REPORT INFORMATION
  Report Type: Spontaneous
  Country: JP (occurrence: JP)
  Receive Date: 20240426
  Receipt Date: 20241204
  Transmission Date: 20250115
  Serious: Yes (Death, Hospitalization, Other)
  Sender: BRISTOL-MYERS SQUIBB COMPANY
  Company Number: JP-BRISTOL-MYERS SQUIBB COMPANY-2024-064775

PATIENT
  Age: 7 Decade
  Sex: Male
  Weight: 73 kg

DRUGS (7)
  1. YERVOY [Suspect]
     Active Substance: IPILIMUMAB
     Indication: Non-small cell lung cancer
     Route: 041
  2. OPDIVO [Suspect]
     Active Substance: NIVOLUMAB
     Indication: Non-small cell lung cancer
     Dosage: DAY 1
  3. OPDIVO [Suspect]
     Active Substance: NIVOLUMAB
     Dosage: DAY 31
  4. CARBOPLATIN [Suspect]
     Active Substance: CARBOPLATIN
     Indication: Non-small cell lung cancer
     Dosage: DAY 31
  5. CARBOPLATIN [Suspect]
     Active Substance: CARBOPLATIN
     Dosage: DAY 1
  6. PEMETREXED [Suspect]
     Active Substance: PEMETREXED
     Indication: Non-small cell lung cancer
     Dosage: DAY 31
  7. PEMETREXED [Suspect]
     Active Substance: PEMETREXED
     Dosage: DAY 1

REACTIONS (5)
  - Respiratory failure [Fatal]
  - Neck pain [Unknown]
  - Dizziness [Unknown]
  - Liver disorder [Unknown]
  - Myositis [Unknown]
